FAERS Safety Report 9677505 (Version 1)
Quarter: 2013Q4

REPORT INFORMATION
  Report Type: Spontaneous
  Country: US (occurrence: None)
  Receive Date: 20131107
  Receipt Date: 20131107
  Transmission Date: 20140711
  Serious: Yes (Disabling, Other)
  Sender: FDA-Public Use
  Company Number: None

PATIENT
  Age: 76 Year
  Sex: Male
  Weight: 99.79 kg

DRUGS (1)
  1. XARELTO 20MG JANSSEN [Suspect]
     Indication: ATRIAL FIBRILLATION
     Dosage: 1 PILL
     Route: 048
     Dates: start: 20130918, end: 20130929

REACTIONS (6)
  - Hallucination [None]
  - Speech disorder [None]
  - Urinary retention [None]
  - Urinary bladder haemorrhage [None]
  - Blood urine present [None]
  - Bladder obstruction [None]
